FAERS Safety Report 16583308 (Version 1)
Quarter: 2019Q3

REPORT INFORMATION
  Report Type: Spontaneous
  Country: DE (occurrence: DE)
  Receive Date: 20190717
  Receipt Date: 20190717
  Transmission Date: 20191004
  Serious: Yes (Hospitalization, Other)
  Sender: FDA-Public Use
  Company Number: DE-PFIZER INC-2019299122

PATIENT
  Age: 80 Year
  Sex: Male
  Weight: 87 kg

DRUGS (6)
  1. ATORVASTATIN CALCIUM. [Suspect]
     Active Substance: ATORVASTATIN CALCIUM
     Dosage: 20 MG, 1X/DAY, 0-0-1, TABLETS
     Route: 048
  2. ASPIRIN. [Concomitant]
     Active Substance: ASPIRIN
     Dosage: 100 MG, 1X/DAY, 1-0-0
     Route: 048
  3. OLMESARTAN/HYDROCHLOROTHIAZIDE [Concomitant]
     Active Substance: HYDROCHLOROTHIAZIDE\OLMESARTAN MEDOXOMIL
     Dosage: 20 MG, 1X/DAY, 1-0-0
     Route: 048
  4. ATOSIL [PROMETHAZINE HYDROCHLORIDE] [Concomitant]
     Active Substance: PROMETHAZINE HYDROCHLORIDE
     Dosage: UNK UNK, SINGLE
     Route: 048
  5. ROXITHROMYCIN [Concomitant]
     Active Substance: ROXITHROMYCIN
     Dosage: UNK
     Route: 048
  6. FELODIPIN [Concomitant]
     Active Substance: FELODIPINE
     Dosage: UNK UNK, 2X/DAY, 1-1-0
     Route: 048

REACTIONS (10)
  - Cough [Unknown]
  - Liver function test abnormal [Unknown]
  - Hiccups [Unknown]
  - Blood creatine phosphokinase increased [Unknown]
  - Blood creatinine increased [Unknown]
  - Blood potassium decreased [Unknown]
  - C-reactive protein increased [Unknown]
  - Dysuria [Unknown]
  - Glomerular filtration rate decreased [Unknown]
  - Fall [Unknown]

NARRATIVE: CASE EVENT DATE: 20170609
